FAERS Safety Report 5085839-4 (Version None)
Quarter: 2006Q3

REPORT INFORMATION
  Report Type: 
  Country: None (occurrence: None)
  Receive Date: 20060817
  Receipt Date: 20060803
  Transmission Date: 20061208
  Serious: Yes (Hospitalization, Other)
  Sender: FDA-Public Use
  Company Number: US-2006-012157

PATIENT
  Age: 51 Year
  Sex: Male
  Weight: 103.4 kg

DRUGS (9)
  1. BETASERON [Suspect]
     Indication: SECONDARY PROGRESSIVE MULTIPLE SCLEROSIS
     Dosage: 8 MIU, EVERY 2D, SUBCUTANEOUS
     Route: 058
     Dates: start: 19960201
  2. CLINDAMYCIN [Concomitant]
  3. CLONAZEPAM [Concomitant]
  4. PHENYTOIN [Concomitant]
  5. ZOCOR [Concomitant]
  6. ZANTAC [Concomitant]
  7. LISINOPRIL [Concomitant]
  8. GEDDONE (ZIPRASIDONE) [Concomitant]
  9. ASPIRIN [Concomitant]

REACTIONS (25)
  - ACTIVITIES OF DAILY LIVING IMPAIRED [None]
  - ARTHRALGIA [None]
  - ASTHENIA [None]
  - BLOOD PRESSURE DECREASED [None]
  - BODY TEMPERATURE DECREASED [None]
  - COMPLEX PARTIAL SEIZURES [None]
  - COMPUTERISED TOMOGRAM ABNORMAL [None]
  - CONSTIPATION [None]
  - DYSPNOEA [None]
  - FALL [None]
  - FATIGUE [None]
  - FEELING ABNORMAL [None]
  - GLIOMA [None]
  - LIVER DISORDER [None]
  - LOSS OF CONSCIOUSNESS [None]
  - NUCLEAR MAGNETIC RESONANCE IMAGING BRAIN ABNORMAL [None]
  - ORAL CANDIDIASIS [None]
  - PERSONALITY CHANGE [None]
  - PYREXIA [None]
  - SPEECH DISORDER [None]
  - STATUS EPILEPTICUS [None]
  - THIRST [None]
  - WEIGHT DECREASED [None]
  - WHEEZING [None]
  - WHITE BLOOD CELL COUNT DECREASED [None]
